FAERS Safety Report 5015989-X (Version None)
Quarter: 2006Q2

REPORT INFORMATION
  Report Type: 
  Country: None (occurrence: None)
  Receive Date: 20060414
  Receipt Date: 20060313
  Transmission Date: 20061013
  Serious: No
  Sender: FDA-Public Use
  Company Number: 2006SP001201

PATIENT
  Age: 49 Year
  Sex: Female
  Weight: 73.4827 kg

DRUGS (8)
  1. LUNESTA [Suspect]
     Indication: INSOMNIA
     Dosage: 3 MG;ORAL
     Route: 048
     Dates: start: 20060301, end: 20060312
  2. RITALIN [Concomitant]
  3. WELLBUTRIN [Concomitant]
  4. TOPAMAX [Concomitant]
  5. PANTOPRAZOLE [Concomitant]
  6. PEPCID [Concomitant]
  7. ESTROGENS CONJUGATED [Concomitant]
  8. KLONOPIN [Concomitant]

REACTIONS (3)
  - CRYING [None]
  - MIDDLE INSOMNIA [None]
  - OESOPHAGEAL DISORDER [None]
